FAERS Safety Report 21699980 (Version 2)
Quarter: 2022Q4

REPORT INFORMATION
  Report Type: Spontaneous
  Country: JP (occurrence: JP)
  Receive Date: 20221208
  Receipt Date: 20221216
  Transmission Date: 20230112
  Serious: Yes (Other)
  Sender: FDA-Public Use
  Company Number: JP-002147023-NVSJ2020JP015085

PATIENT
  Age: 69 Year
  Sex: Male

DRUGS (4)
  1. ADRIACIN [Suspect]
     Active Substance: DOXORUBICIN HYDROCHLORIDE
     Indication: Transitional cell carcinoma
     Dosage: UNK (14 COURSES OF MVAC THERAPY)
     Route: 065
  2. METHOTREXATE [Suspect]
     Active Substance: METHOTREXATE
     Indication: Transitional cell carcinoma
     Dosage: UNK (14 COURSES OF MVAC THERAPY)
     Route: 065
  3. VINBLASTINE SULFATE [Suspect]
     Active Substance: VINBLASTINE SULFATE
     Indication: Transitional cell carcinoma
     Dosage: UNK (14 COURSES OF MVAC THERAPY)
     Route: 065
  4. CISPLATIN [Suspect]
     Active Substance: CISPLATIN
     Indication: Transitional cell carcinoma
     Dosage: UNK (14 COURSES OF MVAC THERAPY)
     Route: 065

REACTIONS (3)
  - Toxicity to various agents [Unknown]
  - Performance status decreased [Recovering/Resolving]
  - Product use in unapproved indication [Unknown]
